FAERS Safety Report 15614685 (Version 2)
Quarter: 2019Q1

REPORT INFORMATION
  Report Type: Spontaneous
  Country: JP (occurrence: JP)
  Receive Date: 20181113
  Receipt Date: 20190111
  Transmission Date: 20190417
  Serious: Yes (Other)
  Sender: FDA-Public Use
  Company Number: JP-AMGEN-JPNNI2018161903

PATIENT

DRUGS (6)
  1. PANITUMUMAB [Suspect]
     Active Substance: PANITUMUMAB
     Indication: COLON CANCER
     Dosage: UNK
     Route: 050
  2. FLUOROURACIL. [Suspect]
     Active Substance: FLUOROURACIL
     Indication: COLON CANCER
     Dosage: UNK
     Route: 040
  3. FLUOROURACIL. [Suspect]
     Active Substance: FLUOROURACIL
     Dosage: UNK
     Route: 041
  4. RAMUCIRUMAB [Suspect]
     Active Substance: RAMUCIRUMAB
     Indication: COLON CANCER
     Dosage: UNK
     Route: 050
  5. CALCIUM LEVOFOLINATE [Suspect]
     Active Substance: LEVOLEUCOVORIN CALCIUM
     Indication: COLON CANCER
     Dosage: UNK
     Route: 041
  6. IRINOTECAN HYDROCHLORIDE. [Suspect]
     Active Substance: IRINOTECAN HYDROCHLORIDE
     Indication: COLON CANCER
     Dosage: UNK
     Route: 041

REACTIONS (8)
  - Leukopenia [Unknown]
  - Febrile neutropenia [Unknown]
  - Insomnia [Unknown]
  - Fatigue [Unknown]
  - Proteinuria [Unknown]
  - Stomatitis [Unknown]
  - Haemorrhage [Unknown]
  - Neutropenia [Unknown]
